FAERS Safety Report 16559088 (Version 3)
Quarter: 2019Q3

REPORT INFORMATION
  Report Type: Spontaneous
  Country: US (occurrence: US)
  Receive Date: 20190711
  Receipt Date: 20190919
  Transmission Date: 20191004
  Serious: Yes (Death)
  Sender: FDA-Public Use
  Company Number: US-PFIZER INC-2019297092

PATIENT
  Age: 70 Year
  Sex: Female

DRUGS (1)
  1. VIZIMPRO [Suspect]
     Active Substance: DACOMITINIB
     Indication: LUNG NEOPLASM MALIGNANT
     Dosage: 30 MG, UNK

REACTIONS (1)
  - Neoplasm progression [Fatal]
